FAERS Safety Report 5637374-X (Version None)
Quarter: 2008Q1

REPORT INFORMATION
  Report Type: 
  Country: None (occurrence: None)
  Receive Date: 20080225
  Receipt Date: 20080215
  Transmission Date: 20080703
  Serious: Yes (Hospitalization)
  Sender: FDA-Public Use
  Company Number: JP-PFIZER INC-2008003553

PATIENT
  Sex: Female
  Weight: 55 kg

DRUGS (8)
  1. LIPITOR [Suspect]
     Indication: HYPERLIPIDAEMIA
     Route: 048
     Dates: start: 20071025, end: 20071220
  2. SHAKUYAKU-KANZO-TO [Suspect]
     Indication: OSTEOARTHRITIS
     Route: 048
     Dates: start: 20071117, end: 20071124
  3. GASMOTIN [Concomitant]
     Dosage: DAILY DOSE:15MG
     Route: 048
     Dates: start: 20071218, end: 20071220
  4. AMLODIPINE BESYLATE [Concomitant]
     Route: 048
  5. LOSARTAN POTASSIUM [Concomitant]
     Route: 048
  6. GOSHAJINKIGAN [Concomitant]
     Route: 048
     Dates: start: 20071117, end: 20071124
  7. TERNELIN [Concomitant]
     Route: 048
     Dates: start: 20071117, end: 20071124
  8. TSUKUSHI AM [Concomitant]
     Route: 048
     Dates: start: 20071218, end: 20071220

REACTIONS (10)
  - ALANINE AMINOTRANSFERASE INCREASED [None]
  - ALDOLASE INCREASED [None]
  - ASPARTATE AMINOTRANSFERASE INCREASED [None]
  - BLOOD ALKALINE PHOSPHATASE INCREASED [None]
  - BLOOD CREATINE PHOSPHOKINASE INCREASED [None]
  - BLOOD LACTATE DEHYDROGENASE INCREASED [None]
  - BLOOD POTASSIUM DECREASED [None]
  - GAMMA-GLUTAMYLTRANSFERASE INCREASED [None]
  - MYALGIA [None]
  - MYOGLOBIN BLOOD INCREASED [None]
